FAERS Safety Report 9322648 (Version 1)
Quarter: 2013Q2

REPORT INFORMATION
  Report Type: Report from Study
  Country: CA (occurrence: CA)
  Receive Date: 20130531
  Receipt Date: 20130531
  Transmission Date: 20140414
  Serious: Yes (Other)
  Sender: FDA-Public Use
  Company Number: CA-ROCHE-1230642

PATIENT
  Age: 56 Year
  Sex: Male
  Weight: 73.9 kg

DRUGS (5)
  1. XELODA [Suspect]
     Indication: OESOPHAGEAL CARCINOMA
     Route: 048
     Dates: start: 201207, end: 201211
  2. CRESTOR [Concomitant]
  3. LIPIDIL [Concomitant]
  4. NEXIUM [Concomitant]
  5. MORPHINE [Concomitant]

REACTIONS (3)
  - Thrombosis [Unknown]
  - Disease progression [Not Recovered/Not Resolved]
  - Gout [Not Recovered/Not Resolved]
